FAERS Safety Report 8478278-7 (Version None)
Quarter: 2012Q2

REPORT INFORMATION
  Report Type: 
  Country: None (occurrence: None)
  Receive Date: 20120629
  Receipt Date: 20120621
  Transmission Date: 20120825
  Serious: Yes (Life-Threatening, Hospitalization, Other)
  Sender: FDA-Public Use
  Company Number: AT-JNJFOC-20120515060

PATIENT
  Sex: Female
  Weight: 110 kg

DRUGS (9)
  1. XARELTO [Suspect]
     Indication: THROMBOSIS PROPHYLAXIS
     Route: 048
     Dates: start: 20120510, end: 20120513
  2. VENLAFAXINE HCL [Concomitant]
  3. HYDAL [Concomitant]
  4. XARELTO [Suspect]
     Indication: KNEE OPERATION
     Route: 048
     Dates: start: 20120510, end: 20120513
  5. LOVENOX [Concomitant]
     Indication: KNEE OPERATION
     Dates: end: 20120509
  6. TRITAZIDE [Concomitant]
  7. DOLPASSE [Concomitant]
     Indication: PROCEDURAL PAIN
  8. LEVOTHYROXINE SODIUM [Concomitant]
  9. PANTOPRAZOLE SODIUM [Concomitant]

REACTIONS (2)
  - DRUG INEFFECTIVE [None]
  - PULMONARY EMBOLISM [None]
